FAERS Safety Report 9199165 (Version 2)
Quarter: 2013Q2

REPORT INFORMATION
  Report Type: Spontaneous
  Country: US (occurrence: US)
  Receive Date: 20130329
  Receipt Date: 20130527
  Transmission Date: 20140414
  Serious: No
  Sender: FDA-Public Use
  Company Number: US-009507513-1303USA013127

PATIENT
  Age: 54 Year
  Sex: Male
  Weight: 104.31 kg

DRUGS (4)
  1. PEGINTRON [Suspect]
     Indication: HEPATITIS C
     Dosage: 120 MCG WEEKLY
     Route: 058
     Dates: start: 201212
  2. PEGINTRON [Suspect]
     Dosage: 90 MCG WEEKLY
     Route: 058
  3. REBETOL [Suspect]
     Dosage: UNK, BID
     Route: 048
  4. NEUPOGEN [Concomitant]
     Dosage: 300 MCG A WEEK

REACTIONS (4)
  - Somnolence [Not Recovered/Not Resolved]
  - Fatigue [Not Recovered/Not Resolved]
  - Asthenia [Not Recovered/Not Resolved]
  - Product quality issue [Unknown]
